FAERS Safety Report 16720011 (Version 1)
Quarter: 2019Q4

REPORT INFORMATION
  Report Type: Spontaneous
  Country: US (occurrence: US)
  Receive Date: 20190819
  Receipt Date: 20190819
  Transmission Date: 20200122
  Serious: Yes (Other)
  Sender: FDA-Public Use
  Company Number: None

PATIENT
  Age: 72 Year
  Weight: 83.25 kg

DRUGS (4)
  1. METOPOROL [Concomitant]
  2. FENOFIBRATE. [Concomitant]
     Active Substance: FENOFIBRATE
  3. BENICAR [Concomitant]
     Active Substance: OLMESARTAN MEDOXOMIL
  4. EQUATE RESTORE TEARS [Suspect]
     Active Substance: CARBOXYMETHYLCELLULOSE SODIUM
     Indication: DRY EYE
     Route: 047
     Dates: start: 20190701, end: 20190815

REACTIONS (4)
  - Ocular hyperaemia [None]
  - Foreign body sensation in eyes [None]
  - Photosensitivity reaction [None]
  - Eye swelling [None]

NARRATIVE: CASE EVENT DATE: 20190801
